FAERS Safety Report 13374578 (Version 3)
Quarter: 2017Q2

REPORT INFORMATION
  Report Type: Spontaneous
  Country: US (occurrence: US)
  Receive Date: 20170327
  Receipt Date: 20170424
  Transmission Date: 20170830
  Serious: Yes (Other)
  Sender: FDA-Public Use
  Company Number: US-PFIZER INC-2017130256

PATIENT
  Age: 18 Year
  Sex: Female
  Weight: 131.52 kg

DRUGS (3)
  1. ZOLOFT [Suspect]
     Active Substance: SERTRALINE HYDROCHLORIDE
     Dosage: 75 MG, DAILY (25 MG 3 TABLETS ONCE A DAY)
     Route: 048
     Dates: start: 2017, end: 2017
  2. ZOLOFT [Suspect]
     Active Substance: SERTRALINE HYDROCHLORIDE
     Indication: POST-TRAUMATIC STRESS DISORDER
     Dosage: 25 MG, UNK
     Route: 048
     Dates: start: 201701, end: 2017
  3. ZOLOFT [Suspect]
     Active Substance: SERTRALINE HYDROCHLORIDE
     Dosage: 100 MG, 1X/DAY
     Route: 048
     Dates: start: 2017, end: 2017

REACTIONS (3)
  - Disease recurrence [Not Recovered/Not Resolved]
  - Coeliac disease [Not Recovered/Not Resolved]
  - Reaction to drug excipients [Unknown]

NARRATIVE: CASE EVENT DATE: 20170320
